FAERS Safety Report 4823193-0 (Version None)
Quarter: 2005Q4

REPORT INFORMATION
  Report Type: 
  Country: None (occurrence: None)
  Receive Date: 20051027
  Receipt Date: 20050222
  Transmission Date: 20060501
  Serious: Yes (Other)
  Sender: FDA-Public Use
  Company Number: HQWYE559624FEB05

PATIENT
  Age: 60 Year
  Sex: Female
  Weight: 90.8 kg

DRUGS (4)
  1. PREMARIN [Suspect]
     Indication: ARTIFICIAL MENOPAUSE
     Dosage: 0.625MG DAILY, ORAL
     Route: 048
     Dates: start: 20020101, end: 20040101
  2. DIOVAN [Concomitant]
  3. ALLEGRA [Concomitant]
  4. BECONASE (BECLOMETASONE DIPROPIONATE) [Concomitant]

REACTIONS (2)
  - CEREBROVASCULAR ACCIDENT [None]
  - LABORATORY TEST ABNORMAL [None]
